FAERS Safety Report 16924669 (Version 1)
Quarter: 2019Q4

REPORT INFORMATION
  Report Type: Spontaneous
  Country: US (occurrence: US)
  Receive Date: 20191016
  Receipt Date: 20191016
  Transmission Date: 20200122
  Serious: No
  Sender: FDA-Public Use
  Company Number: US-PFIZER INC-2019441763

PATIENT
  Sex: Male

DRUGS (1)
  1. XELJANZ [Suspect]
     Active Substance: TOFACITINIB CITRATE
     Indication: CYSTITIS INTERSTITIAL
     Dosage: 10 MG, 2X/DAY

REACTIONS (3)
  - Product use in unapproved indication [Unknown]
  - Drug eruption [Unknown]
  - Off label use [Unknown]
